FAERS Safety Report 20470358 (Version 1)
Quarter: 2022Q1

REPORT INFORMATION
  Report Type: Spontaneous
  Country: US (occurrence: US)
  Receive Date: 20220214
  Receipt Date: 20220214
  Transmission Date: 20220423
  Serious: No
  Sender: FDA-Public Use
  Company Number: US-PFIZER INC-2020102616

PATIENT
  Age: 68 Year
  Sex: Female
  Weight: 70.31 kg

DRUGS (3)
  1. XELJANZ [Suspect]
     Active Substance: TOFACITINIB CITRATE
     Indication: Rheumatoid arthritis
     Dosage: 5 MG, 2X/DAY (1 TABLET IN THE MORNING AND 1 TABLET AT NIGHT)
  2. XELJANZ [Suspect]
     Active Substance: TOFACITINIB CITRATE
     Indication: Fibromyalgia
     Dosage: 5 MG, 1X/DAY (TAKE ONE TWICE DAILY BY MOUTH)
  3. XELJANZ [Suspect]
     Active Substance: TOFACITINIB CITRATE
     Indication: Sjogren^s syndrome
     Dosage: 5 MG 2X/DAY (5 MG TWICE A DAY)
     Route: 048

REACTIONS (20)
  - Product dose omission issue [Unknown]
  - Fatigue [Unknown]
  - Arthralgia [Unknown]
  - Bowel movement irregularity [Unknown]
  - Decreased appetite [Unknown]
  - Pain [Unknown]
  - Pain in extremity [Unknown]
  - Arthralgia [Unknown]
  - Arthralgia [Unknown]
  - Arthralgia [Unknown]
  - Arthralgia [Unknown]
  - Pain [Unknown]
  - Joint swelling [Unknown]
  - Grip strength decreased [Unknown]
  - Gait disturbance [Unknown]
  - Movement disorder [Unknown]
  - Arthritis [Unknown]
  - COVID-19 [Unknown]
  - Influenza [Unknown]
  - Anticoagulant therapy [Unknown]
